FAERS Safety Report 12254119 (Version 24)
Quarter: 2017Q3

REPORT INFORMATION
  Report Type: Report from Study
  Country: US (occurrence: US)
  Receive Date: 20160411
  Receipt Date: 20170831
  Transmission Date: 20171127
  Serious: Yes (Hospitalization, Other)
  Sender: FDA-Public Use
  Company Number: US-SA-2016SA060293

PATIENT
  Age: 44 Year
  Sex: Female

DRUGS (16)
  1. MACRODANTIN [Concomitant]
     Active Substance: NITROFURANTOIN
     Indication: PROPHYLAXIS
  2. ATIVAN [Concomitant]
     Active Substance: LORAZEPAM
  3. VITAMIN B12 [Concomitant]
     Active Substance: CYANOCOBALAMIN
  4. ACYCLOVIR. [Concomitant]
     Active Substance: ACYCLOVIR
  5. LEMTRADA [Suspect]
     Active Substance: ALEMTUZUMAB
     Indication: MULTIPLE SCLEROSIS
     Route: 041
     Dates: start: 20160321, end: 20160325
  6. MIRALAX [Concomitant]
     Active Substance: POLYETHYLENE GLYCOL 3350
     Indication: CONSTIPATION
  7. ZOFRAN [Concomitant]
     Active Substance: ONDANSETRON HYDROCHLORIDE
  8. SENOKOT [Concomitant]
     Active Substance: SENNOSIDES
  9. RANITIDINE. [Concomitant]
     Active Substance: RANITIDINE
  10. DIOVAN [Concomitant]
     Active Substance: VALSARTAN
     Route: 065
  11. VICODIN [Concomitant]
     Active Substance: ACETAMINOPHEN\HYDROCODONE BITARTRATE
  12. IBUPROFEN. [Concomitant]
     Active Substance: IBUPROFEN
  13. FLONASE [Concomitant]
     Active Substance: FLUTICASONE PROPIONATE
  14. PRILOSEC [Concomitant]
     Active Substance: OMEPRAZOLE MAGNESIUM
  15. ZYRTEC [Concomitant]
     Active Substance: CETIRIZINE HYDROCHLORIDE
  16. VITAMIN D [Concomitant]
     Active Substance: CHOLECALCIFEROL

REACTIONS (77)
  - Condition aggravated [Not Recovered/Not Resolved]
  - Blood pressure increased [Recovered/Resolved]
  - Feeding disorder [Not Recovered/Not Resolved]
  - Oropharyngeal pain [Not Recovered/Not Resolved]
  - Protein urine present [Not Recovered/Not Resolved]
  - Carbohydrate antigen 125 increased [Unknown]
  - Depression [Not Recovered/Not Resolved]
  - Pain [Recovering/Resolving]
  - Constipation [Recovered/Resolved]
  - Headache [Not Recovered/Not Resolved]
  - Fungal infection [Not Recovered/Not Resolved]
  - Candida infection [Recovered/Resolved]
  - Ovarian cyst [Not Recovered/Not Resolved]
  - Neurogenic bladder [Unknown]
  - Benign ovarian tumour [Not Recovered/Not Resolved]
  - Asthenia [Recovering/Resolving]
  - Platelet count increased [Unknown]
  - Pain [Not Recovered/Not Resolved]
  - Muscle spasms [Not Recovered/Not Resolved]
  - Muscular weakness [Not Recovered/Not Resolved]
  - General physical health deterioration [Unknown]
  - CD4 lymphocytes increased [Unknown]
  - Oesophageal ulcer [Not Recovered/Not Resolved]
  - Scar [Not Recovered/Not Resolved]
  - Muscle spasticity [Not Recovered/Not Resolved]
  - Diplopia [Recovered/Resolved]
  - Feeling abnormal [Not Recovered/Not Resolved]
  - Fatigue [Not Recovered/Not Resolved]
  - Dysgeusia [Not Recovered/Not Resolved]
  - Fall [Unknown]
  - Laboratory test abnormal [Not Recovered/Not Resolved]
  - Scab [Unknown]
  - Faeces soft [Recovered/Resolved]
  - Uterine polyp [Unknown]
  - Blood thyroid stimulating hormone increased [Recovering/Resolving]
  - Muscle spasms [Recovered/Resolved]
  - Stomatitis [Recovered/Resolved]
  - Sensory disturbance [Not Recovered/Not Resolved]
  - Arthropathy [Not Recovered/Not Resolved]
  - Gait disturbance [Not Recovered/Not Resolved]
  - Nausea [Recovering/Resolving]
  - Influenza like illness [Recovering/Resolving]
  - Bacterial test [Not Recovered/Not Resolved]
  - Central nervous system lesion [Not Recovered/Not Resolved]
  - Ill-defined disorder [Not Recovered/Not Resolved]
  - CD4 lymphocytes decreased [Not Recovered/Not Resolved]
  - Oral herpes [Recovered/Resolved]
  - Multiple sclerosis relapse [Recovered/Resolved]
  - Burning sensation [Not Recovered/Not Resolved]
  - Hypersomnia [Not Recovered/Not Resolved]
  - Balance disorder [Not Recovered/Not Resolved]
  - Malaise [Not Recovered/Not Resolved]
  - Diarrhoea [Not Recovered/Not Resolved]
  - Rash [Not Recovered/Not Resolved]
  - Urine abnormality [Not Recovered/Not Resolved]
  - Tearfulness [Not Recovered/Not Resolved]
  - Heart rate increased [Not Recovered/Not Resolved]
  - Abdominal pain [Not Recovered/Not Resolved]
  - Odynophagia [Not Recovered/Not Resolved]
  - Oral discomfort [Not Recovered/Not Resolved]
  - Paraesthesia [Not Recovered/Not Resolved]
  - Oral pain [Not Recovered/Not Resolved]
  - Gastrointestinal mucosal exfoliation [Recovered/Resolved]
  - Rash [Not Recovered/Not Resolved]
  - Pruritus [Not Recovered/Not Resolved]
  - Vertigo [Not Recovered/Not Resolved]
  - Throat irritation [Not Recovered/Not Resolved]
  - Rash pruritic [Recovering/Resolving]
  - Hypothyroidism [Recovered/Resolved]
  - Insomnia [Not Recovered/Not Resolved]
  - Anxiety [Unknown]
  - Urinary tract infection [Recovered/Resolved]
  - Infusion related reaction [Unknown]
  - Urine ketone body present [Not Recovered/Not Resolved]
  - Urine analysis abnormal [Not Recovered/Not Resolved]
  - Decreased appetite [Recovering/Resolving]
  - Ill-defined disorder [Unknown]

NARRATIVE: CASE EVENT DATE: 2016
